FAERS Safety Report 4485548-6 (Version None)
Quarter: 2004Q4

REPORT INFORMATION
  Report Type: 
  Country: None (occurrence: None)
  Receive Date: 20041026
  Receipt Date: 20041019
  Transmission Date: 20050328
  Serious: Yes (Other)
  Sender: FDA-Public Use
  Company Number: US-BRISTOL-MYERS SQUIBB COMPANY-12738506

PATIENT

DRUGS (1)
  1. TEQUIN [Suspect]
     Indication: PNEUMONIA STREPTOCOCCAL

REACTIONS (1)
  - DIABETES MELLITUS INSULIN-DEPENDENT [None]
